FAERS Safety Report 14676157 (Version 1)
Quarter: 2018Q1

REPORT INFORMATION
  Report Type: Spontaneous
  Country: JP (occurrence: JP)
  Receive Date: 20180323
  Receipt Date: 20180323
  Transmission Date: 20180509
  Serious: Yes (Hospitalization)
  Sender: FDA-Public Use
  Company Number: GXJP2018JP000780

PATIENT
  Age: 79 Year
  Sex: Female

DRUGS (5)
  1. PIPERACILLIN AND TAZOBACTAM [Suspect]
     Active Substance: PIPERACILLIN SODIUM\TAZOBACTAM SODIUM
     Indication: INFECTION REACTIVATION
     Dosage: UNK
     Route: 065
  2. CLINDAMYCIN. [Suspect]
     Active Substance: CLINDAMYCIN
     Indication: INFECTION REACTIVATION
     Dosage: UNK
     Route: 065
  3. VANCOMYCIN [Concomitant]
     Active Substance: VANCOMYCIN
     Indication: INFECTION REACTIVATION
     Dosage: UNK
     Route: 065
  4. CEFTAZIDIM [Suspect]
     Active Substance: CEFTAZIDIME
     Indication: INFECTION REACTIVATION
     Dosage: UNK
     Route: 065
  5. RIFAMPICIN [Suspect]
     Active Substance: RIFAMPIN
     Indication: INFECTION REACTIVATION
     Dosage: UNK
     Route: 048

REACTIONS (2)
  - Platelet count decreased [Recovering/Resolving]
  - Pulmonary alveolar haemorrhage [Unknown]
